FAERS Safety Report 5600159-4 (Version None)
Quarter: 2008Q1

REPORT INFORMATION
  Report Type: 
  Country: None (occurrence: None)
  Receive Date: 20071226
  Receipt Date: 20071011
  Transmission Date: 20080703
  Serious: Yes (Other)
  Sender: FDA-Public Use
  Company Number: 2007-0013383

PATIENT
  Age: 55 Year
  Sex: Female

DRUGS (2)
  1. VIREAD [Suspect]
  2. KALETRA [Concomitant]

REACTIONS (1)
  - FANCONI SYNDROME ACQUIRED [None]
